FAERS Safety Report 8895807 (Version 5)
Quarter: 2013Q3

REPORT INFORMATION
  Report Type: Spontaneous
  Country: US (occurrence: US)
  Receive Date: 20121108
  Receipt Date: 20130903
  Transmission Date: 20140515
  Serious: Yes (Hospitalization, Other)
  Sender: FDA-Public Use
  Company Number: US-009507513-1211USA001664

PATIENT
  Sex: Female
  Weight: 61.22 kg

DRUGS (10)
  1. FOSAMAX [Suspect]
     Indication: OSTEOPENIA
     Dosage: 70 MG, QW
     Route: 048
     Dates: start: 200311, end: 20031201
  2. FOSAMAX [Suspect]
     Dosage: 70 MG, QW
     Route: 048
     Dates: start: 200709
  3. FOSAMAX PLUS D [Suspect]
     Indication: OSTEOPENIA
     Dosage: 70 MG, QW
     Route: 048
     Dates: start: 200606, end: 200709
  4. ALENDRONATE SODIUM [Suspect]
     Indication: OSTEOPENIA
     Dosage: 70 MG, UNK
     Route: 048
  5. ACTONEL [Suspect]
     Indication: OSTEOPENIA
     Dosage: 35 MG, QW
     Dates: start: 20031201, end: 200606
  6. EVISTA [Concomitant]
     Indication: OSTEOPENIA
     Dosage: UNK
     Dates: start: 1998, end: 2004
  7. NEXIUM [Concomitant]
     Dosage: 40 MG, PRN
     Dates: start: 1997
  8. CALCIUM (UNSPECIFIED) [Concomitant]
     Indication: OSTEOPENIA
     Dosage: 600 MG, BID
  9. VITAMIN D (UNSPECIFIED) [Concomitant]
     Indication: OSTEOPENIA
     Dosage: 1000 IU, UNK
  10. CALTRATE + D [Concomitant]
     Indication: OSTEOPENIA
     Dosage: 600 MG, BID

REACTIONS (42)
  - Intramedullary rod insertion [Unknown]
  - Femur fracture [Unknown]
  - Femur fracture [Unknown]
  - Femur fracture [Unknown]
  - Femur fracture [Unknown]
  - Femur fracture [Unknown]
  - Low turnover osteopathy [Unknown]
  - Fracture nonunion [Unknown]
  - Gait disturbance [Unknown]
  - Fall [Unknown]
  - Wrist fracture [Unknown]
  - Pelvic fracture [Unknown]
  - Blood glucose increased [Unknown]
  - Blood potassium increased [Unknown]
  - Muscle strain [Unknown]
  - Ligament sprain [Unknown]
  - Fall [Unknown]
  - Contusion [Unknown]
  - Paraesthesia [Recovered/Resolved]
  - Hypoaesthesia [Recovered/Resolved]
  - Intervertebral disc protrusion [Unknown]
  - Spinal compression fracture [Unknown]
  - Arthropathy [Unknown]
  - Spinal osteoarthritis [Unknown]
  - Spinal column stenosis [Unknown]
  - Pubis fracture [Unknown]
  - Kyphosis [Unknown]
  - Back disorder [Unknown]
  - Spinal cord compression [Unknown]
  - Medical device pain [Unknown]
  - Bone metabolism disorder [Unknown]
  - Bone lesion [Unknown]
  - Pelvic fracture [Unknown]
  - Muscle strain [Unknown]
  - Gait disturbance [Unknown]
  - Osteosclerosis [Unknown]
  - Muscle spasms [Recovered/Resolved]
  - Pain in extremity [Unknown]
  - Pain in extremity [Recovering/Resolving]
  - Arthralgia [Unknown]
  - Arthralgia [Recovered/Resolved]
  - Dysphagia [Unknown]
